FAERS Safety Report 9506484 (Version 1)
Quarter: 2013Q3

REPORT INFORMATION
  Report Type: Spontaneous
  Country: IT (occurrence: IT)
  Receive Date: 20130906
  Receipt Date: 20130906
  Transmission Date: 20140515
  Serious: Yes (Hospitalization)
  Sender: FDA-Public Use
  Company Number: PHHY2013IT097746

PATIENT
  Age: 64 Year
  Sex: Female

DRUGS (7)
  1. STALEVO [Suspect]
     Indication: PARKINSON^S DISEASE
     Dosage: 1 DF, DAY
     Route: 048
     Dates: start: 20130706, end: 20130713
  2. STALEVO [Suspect]
     Dosage: UNK UKN, UNK
  3. METFORMINA [Concomitant]
     Dosage: UNK UKN, UNK
  4. PAROXETINE [Concomitant]
     Dosage: UNK UKN, UNK
  5. LANSOX [Concomitant]
     Dosage: UNK UKN, UNK
  6. SINEMET [Concomitant]
     Dosage: UNK UKN, UNK
  7. ALGIX [Concomitant]
     Dosage: UNK UKN, UNK

REACTIONS (4)
  - Loss of consciousness [Unknown]
  - Hyperpyrexia [Unknown]
  - Confusional state [Unknown]
  - Dyskinesia [Unknown]
